FAERS Safety Report 9571231 (Version 3)
Quarter: 2013Q4

REPORT INFORMATION
  Report Type: Spontaneous
  Country: DK (occurrence: NL)
  Receive Date: 20131001
  Receipt Date: 20131118
  Transmission Date: 20140711
  Serious: Yes (Death)
  Sender: FDA-Public Use
  Company Number: NL-FRI-1000049163

PATIENT
  Age: 45 Year
  Sex: Female

DRUGS (2)
  1. CITALOPRAM [Suspect]
     Indication: DEPRESSION
     Dosage: 20 MG
     Route: 048
     Dates: start: 20130821
  2. PAROXETINE HYDROCHLORIDE [Suspect]
     Indication: DEPRESSION
     Route: 048
     Dates: start: 20130711, end: 20130821

REACTIONS (1)
  - Hyponatraemia [Fatal]
